FAERS Safety Report 25056956 (Version 1)
Quarter: 2025Q1

REPORT INFORMATION
  Report Type: Spontaneous
  Country: US (occurrence: US)
  Receive Date: 20250310
  Receipt Date: 20250310
  Transmission Date: 20250408
  Serious: Yes (Hospitalization, Other)
  Sender: ZYDUS PHARM
  Company Number: ZYD-25-AE-208

PATIENT

DRUGS (1)
  1. AMBRISENTAN [Suspect]
     Active Substance: AMBRISENTAN
     Indication: Product used for unknown indication
     Route: 065

REACTIONS (2)
  - Respiratory failure [Recovering/Resolving]
  - Respiratory syncytial virus infection [Recovering/Resolving]

NARRATIVE: CASE EVENT DATE: 20250101
